FAERS Safety Report 7368339-8 (Version None)
Quarter: 2011Q1

REPORT INFORMATION
  Report Type: 
  Country: None (occurrence: None)
  Receive Date: 20110311
  Receipt Date: 20110222
  Transmission Date: 20110831
  Serious: Yes (Hospitalization, Other)
  Sender: FDA-Public Use
  Company Number: 2010P1003488

PATIENT
  Age: 70 Year
  Sex: Female
  Weight: 96.1626 kg

DRUGS (18)
  1. POTASSIUM CHLORIDE ER [Concomitant]
  2. TEKTURNA [Concomitant]
  3. FERROUS SULFATE TAB [Concomitant]
  4. ISOSORBIDE M ER [Concomitant]
  5. TRAMADOL HCL [Concomitant]
  6. VITAMIN D [Concomitant]
  7. CRESTOR [Concomitant]
  8. BUSPAR [Concomitant]
  9. ULORIC [Concomitant]
  10. WARFARIN SODIUM [Suspect]
     Indication: ATRIAL FIBRILLATION
     Dosage: 4 MG; BID; PO
     Route: 048
     Dates: start: 20101001, end: 20110114
  11. WARFARIN SODIUM [Suspect]
     Indication: CARDIOMYOPATHY
     Dosage: 4 MG; BID; PO
     Route: 048
     Dates: start: 20101001, end: 20110114
  12. STARLIX [Concomitant]
  13. LOSATAN POTASSIUM [Concomitant]
  14. LORATADINE [Concomitant]
  15. NITROGLIDE [Concomitant]
  16. COLCHICINE [Concomitant]
  17. FUROSEMIDE [Concomitant]
  18. HYDROXYZINE [Concomitant]

REACTIONS (9)
  - HYPOAESTHESIA FACIAL [None]
  - INTERNATIONAL NORMALISED RATIO DECREASED [None]
  - HEADACHE [None]
  - PALPITATIONS [None]
  - FATIGUE [None]
  - BLOOD DISORDER [None]
  - CHEST PAIN [None]
  - BUNDLE BRANCH BLOCK LEFT [None]
  - TRANSIENT ISCHAEMIC ATTACK [None]
